FAERS Safety Report 6759553-0 (Version None)
Quarter: 2010Q2

REPORT INFORMATION
  Report Type: 
  Country: None (occurrence: None)
  Receive Date: 20100604
  Receipt Date: 20100528
  Transmission Date: 20101027
  Serious: Yes (Disabling, Other)
  Sender: FDA-Public Use
  Company Number: DSA_42810_2010

PATIENT
  Sex: Male

DRUGS (13)
  1. XENAZINE [Suspect]
     Indication: HUNTINGTON'S CHOREA
     Dosage: 12.5 MG BID ORAL
     Route: 048
     Dates: start: 20100308, end: 20100501
  2. HALOPERIDOL [Concomitant]
  3. TRAZODONE [Concomitant]
  4. XANAX [Concomitant]
  5. PLAVIX [Concomitant]
  6. LORATADINE [Concomitant]
  7. DIGOXIN [Concomitant]
  8. ASPIRIN [Concomitant]
  9. PRAVACHOL [Concomitant]
  10. ZETIA [Concomitant]
  11. BYSTOLIC [Concomitant]
  12. LISINOPRIL [Concomitant]
  13. LEXAPRO [Concomitant]

REACTIONS (14)
  - AGITATION [None]
  - CONDITION AGGRAVATED [None]
  - CONFUSIONAL STATE [None]
  - DEPRESSION [None]
  - DISABILITY [None]
  - DISTURBANCE IN ATTENTION [None]
  - FATIGUE [None]
  - FEELING ABNORMAL [None]
  - GAIT DISTURBANCE [None]
  - INSOMNIA [None]
  - MENTAL STATUS CHANGES [None]
  - SEDATION [None]
  - SELF INJURIOUS BEHAVIOUR [None]
  - SOMNOLENCE [None]
